FAERS Safety Report 6591997-2 (Version None)
Quarter: 2010Q1

REPORT INFORMATION
  Report Type: 
  Country: None (occurrence: None)
  Receive Date: 20100221
  Receipt Date: 20090820
  Transmission Date: 20100710
  Serious: No
  Sender: FDA-Public Use
  Company Number: US-ALLERGAN-0911690US

PATIENT
  Age: 30 Year
  Sex: Male

DRUGS (1)
  1. BOTOX [Suspect]
     Indication: MUSCLE SPASTICITY
     Dosage: UNK
     Route: 030
     Dates: start: 20090521, end: 20090521

REACTIONS (1)
  - OEDEMA PERIPHERAL [None]
